FAERS Safety Report 6794161-7 (Version None)
Quarter: 2010Q2

REPORT INFORMATION
  Report Type: 
  Country: None (occurrence: None)
  Receive Date: 20100624
  Receipt Date: 20100326
  Transmission Date: 20101027
  Serious: Yes (Death, Other)
  Sender: FDA-Public Use
  Company Number: JP-PFIZER INC-2009308299

PATIENT
  Sex: Male
  Weight: 52 kg

DRUGS (17)
  1. UNASYN [Suspect]
     Indication: PNEUMONIA
     Dosage: 1.5 G, 3X/DAY
     Route: 042
     Dates: start: 20091123, end: 20091127
  2. CLINDAMYCIN PHOSPHATE [Suspect]
     Indication: PNEUMONIA
     Dosage: 600 MG, 2X/DAY
     Route: 042
     Dates: start: 20091118, end: 20091123
  3. CEFMETAZOLE SODIUM [Suspect]
     Indication: PNEUMONIA
     Dates: start: 20091127
  4. MEVALOTIN [Concomitant]
     Route: 048
  5. PANALDINE [Concomitant]
     Route: 048
  6. MAINTATE [Concomitant]
     Route: 048
  7. MARZULENE S [Concomitant]
     Route: 048
  8. ASPENON [Concomitant]
     Route: 048
  9. ASPIRIN [Concomitant]
     Route: 048
  10. RENIVACE [Concomitant]
     Route: 048
  11. BASEN [Concomitant]
     Route: 048
  12. GASTER [Concomitant]
     Route: 048
  13. PURSENNID [Concomitant]
     Route: 048
  14. GASMOTIN [Concomitant]
     Route: 048
  15. BENZALIN [Concomitant]
     Route: 048
  16. NITROPEN [Concomitant]
     Route: 048
  17. ITOROL [Concomitant]
     Route: 048

REACTIONS (3)
  - ACUTE RESPIRATORY DISTRESS SYNDROME [None]
  - DRUG INEFFECTIVE [None]
  - MULTI-ORGAN FAILURE [None]
